FAERS Safety Report 8094244 (Version 4)
Quarter: 2014Q1

REPORT INFORMATION
  Report Type: Report from Study
  Country: US (occurrence: US)
  Receive Date: 20110817
  Receipt Date: 20140325
  Transmission Date: 20141002
  Serious: Yes (Hospitalization, Other)
  Sender: FDA-Public Use
  Company Number: US-ALEXION-A201101177

PATIENT
  Age: 45 Year
  Sex: Female

DRUGS (5)
  1. SOLIRIS [Suspect]
     Indication: PAROXYSMAL NOCTURNAL HAEMOGLOBINURIA
     Dosage: 900 MG, Q2W
     Route: 042
     Dates: start: 20090305
  2. SOLIRIS [Suspect]
     Dosage: 300 MG, UNK
     Route: 042
  3. FOLIC ACID [Concomitant]
     Dosage: 2 MG, QD
  4. PEPCID [Concomitant]
     Dosage: UNK QD
  5. TYLENOL [Concomitant]
     Dosage: UNK, PRN

REACTIONS (10)
  - Platelet count decreased [Not Recovered/Not Resolved]
  - Vaginal haemorrhage [Not Recovered/Not Resolved]
  - White blood cell count decreased [Not Recovered/Not Resolved]
  - Haemoglobin decreased [Unknown]
  - Blood glucose decreased [Unknown]
  - Blood lactate dehydrogenase increased [Not Recovered/Not Resolved]
  - Smear cervix abnormal [Unknown]
  - Dizziness [Unknown]
  - Asthenia [Unknown]
  - Menstrual disorder [Not Recovered/Not Resolved]
